FAERS Safety Report 4442012-8 (Version None)
Quarter: 2004Q3

REPORT INFORMATION
  Report Type: 
  Country: None (occurrence: None)
  Receive Date: 20040901
  Receipt Date: 20040819
  Transmission Date: 20050211
  Serious: Yes (Disabling, Other)
  Sender: FDA-Public Use
  Company Number: 2004047627

PATIENT
  Sex: Female
  Weight: 72.5755 kg

DRUGS (3)
  1. ZOLOFT [Suspect]
     Indication: POST-TRAUMATIC STRESS DISORDER
     Dosage: 100 MG (100 MG, 1 IN 1 D), ORAL
     Route: 048
     Dates: start: 19980101
  2. RISPERIDONE [Concomitant]
  3. ZOLPIDEM TARTRATE [Concomitant]

REACTIONS (7)
  - ARTHROPATHY [None]
  - BRUXISM [None]
  - CONCUSSION [None]
  - IMPAIRED WORK ABILITY [None]
  - JAW DISORDER [None]
  - ROAD TRAFFIC ACCIDENT [None]
  - TINNITUS [None]
